FAERS Safety Report 22739239 (Version 3)
Quarter: 2024Q4

REPORT INFORMATION
  Report Type: Spontaneous
  Country: BR (occurrence: BR)
  Receive Date: 20230722
  Receipt Date: 20241228
  Transmission Date: 20250115
  Serious: No
  Sender: CELLTRION
  Company Number: BR-CELLTRION INC.-2023BR014437

PATIENT

DRUGS (7)
  1. TRUXIMA [Suspect]
     Active Substance: RITUXIMAB-ABBS
     Indication: Systemic scleroderma
     Dosage: 2 AMPOULES EVERY 15 DAYS (REPEATS CYCLE EVERY 6 MONTHS)
     Route: 042
     Dates: start: 20230719
  2. TRUXIMA [Suspect]
     Active Substance: RITUXIMAB-ABBS
     Dosage: 2 AMPOULES EVERY 15 DAYS (REPEATS CYCLE EVERY 6 MONTHS)
     Route: 042
  3. TRUXIMA [Suspect]
     Active Substance: RITUXIMAB-ABBS
     Dosage: 2 AMPOULES EVERY 15 DAYS (REPEATS CYCLE EVERY 6 MONTHS)
     Route: 042
     Dates: start: 202410
  4. NINTEDANIB [Concomitant]
     Active Substance: NINTEDANIB
     Indication: Systemic scleroderma
     Dosage: 2 PILLS A DAY/2 TABLETS A DAY
     Route: 048
  5. GLIFAGE [Concomitant]
     Active Substance: METFORMIN HYDROCHLORIDE
     Indication: Diabetes mellitus
     Dosage: 2 PILLS A DAY/2 TABLETS A DAY
     Route: 048
  6. HYDROCHLOROTHIAZIDE [Concomitant]
     Active Substance: HYDROCHLOROTHIAZIDE
     Indication: Hypertension
     Dosage: 1 PILL A DAY/1 TABLET A DAY
     Route: 048
  7. LOSARTAN [Concomitant]
     Active Substance: LOSARTAN
     Indication: Hypertension
     Dosage: 2 PILLS A DAY/2 TABLETS A DAY
     Route: 048

REACTIONS (1)
  - Off label use [Unknown]

NARRATIVE: CASE EVENT DATE: 20230719
